FAERS Safety Report 10071175 (Version 2)
Quarter: 2014Q2

REPORT INFORMATION
  Report Type: Spontaneous
  Country: ES (occurrence: ES)
  Receive Date: 20140410
  Receipt Date: 20140410
  Transmission Date: 20141212
  Serious: Yes (Hospitalization, Other)
  Sender: FDA-Public Use
  Company Number: ES-ABBVIE-13P-144-1048720-00

PATIENT
  Age: 17 Year
  Sex: Female

DRUGS (3)
  1. HUMIRA [Suspect]
     Indication: PRODUCT USED FOR UNKNOWN INDICATION
     Dates: start: 200809, end: 200910
  2. HUMIRA [Suspect]
     Dates: start: 201006
  3. PENTASA [Concomitant]
     Indication: PRODUCT USED FOR UNKNOWN INDICATION

REACTIONS (5)
  - Myositis [Unknown]
  - Diffuse large B-cell lymphoma stage IV [Unknown]
  - Cellulitis [Unknown]
  - Subcutaneous abscess [Unknown]
  - Non-Hodgkin^s lymphoma [Unknown]
